FAERS Safety Report 15267917 (Version 1)
Quarter: 2018Q3

REPORT INFORMATION
  Report Type: Spontaneous
  Country: US (occurrence: US)
  Receive Date: 20180725
  Receipt Date: 20180725
  Transmission Date: 20181010
  Serious: No
  Sender: FDA-Public Use
  Company Number: None

PATIENT
  Sex: Female

DRUGS (4)
  1. LEVEMIR [Concomitant]
     Active Substance: INSULIN DETEMIR
  2. IMATINIB [Suspect]
     Active Substance: IMATINIB
     Indication: ACUTE MYELOID LEUKAEMIA
     Route: 048
     Dates: start: 20180201
  3. NOVOLOG [Concomitant]
     Active Substance: INSULIN ASPART
  4. ATENOLOL, AMLODIPINE [Concomitant]

REACTIONS (2)
  - White blood cell count increased [None]
  - White blood cell count decreased [None]
